FAERS Safety Report 18228728 (Version 1)
Quarter: 2020Q3

REPORT INFORMATION
  Report Type: Spontaneous
  Country: BR (occurrence: BR)
  Receive Date: 20200903
  Receipt Date: 20200903
  Transmission Date: 20201103
  Serious: Yes (Other)
  Sender: FDA-Public Use
  Company Number: NVSC2020BR240557

PATIENT
  Sex: Female

DRUGS (1)
  1. AZORGA SUSPENSION [Suspect]
     Active Substance: BRINZOLAMIDE\TIMOLOL MALEATE
     Indication: PRODUCT USED FOR UNKNOWN INDICATION
     Route: 065

REACTIONS (4)
  - Ill-defined disorder [Unknown]
  - Glaucoma [Unknown]
  - Ocular hypertension [Unknown]
  - Diabetes mellitus [Unknown]
